FAERS Safety Report 16624912 (Version 2)
Quarter: 2019Q3

REPORT INFORMATION
  Report Type: Spontaneous
  Country: US (occurrence: US)
  Receive Date: 20190724
  Receipt Date: 20190812
  Transmission Date: 20191004
  Serious: No
  Sender: FDA-Public Use
  Company Number: US-ASTRAZENECA-2019SF00537

PATIENT
  Sex: Female
  Weight: 74.8 kg

DRUGS (2)
  1. COUMADIN [Concomitant]
     Active Substance: WARFARIN SODIUM
     Indication: ANTICOAGULANT THERAPY
  2. BYDUREON BCISE [Suspect]
     Active Substance: EXENATIDE
     Indication: DIABETES MELLITUS
     Route: 058
     Dates: start: 20190617

REACTIONS (7)
  - Injection site indentation [Unknown]
  - Throat irritation [Unknown]
  - Injection site haemorrhage [Unknown]
  - Oropharyngeal pain [Unknown]
  - Device leakage [Unknown]
  - Injection site injury [Unknown]
  - Product dose omission [Unknown]
